FAERS Safety Report 5765596-6 (Version None)
Quarter: 2008Q2

REPORT INFORMATION
  Report Type: 
  Country: None (occurrence: None)
  Receive Date: 20080605
  Receipt Date: 20080527
  Transmission Date: 20081010
  Serious: Yes (Hospitalization)
  Sender: FDA-Public Use
  Company Number: E2090-00471-SPO-JP

PATIENT
  Age: 90 Year
  Sex: Female

DRUGS (7)
  1. ZONISAMIDE [Suspect]
     Indication: CONVULSION
     Dosage: 200 MG, 2 IN 1 D, ORAL
     Route: 048
     Dates: start: 20080328, end: 20080423
  2. CALONAL (PARACETAMOL) [Suspect]
     Indication: UPPER RESPIRATORY TRACT INFLAMMATION
     Dosage: 900 MG, ORAL
     Route: 048
     Dates: start: 20080414, end: 20080418
  3. LEVOFLOXACIN [Suspect]
     Indication: UPPER RESPIRATORY TRACT INFLAMMATION
     Dosage: 300 MG, ORAL
     Route: 048
     Dates: start: 20080414, end: 20080418
  4. SERMION (NICERGOLINE) [Concomitant]
  5. JUVELA N (TOCOPHEROL) [Concomitant]
  6. MAGMITT (MAGNESIUM OXIDE) (MAGNESIUM OXIDE) [Concomitant]
  7. ^TROCHES (COMP)^ [Concomitant]

REACTIONS (1)
  - ERYTHEMA MULTIFORME [None]
